FAERS Safety Report 18899832 (Version 3)
Quarter: 2021Q1

REPORT INFORMATION
  Report Type: Spontaneous
  Country: GB (occurrence: GB)
  Receive Date: 20210216
  Receipt Date: 20210317
  Transmission Date: 20210420
  Serious: Yes (Other)
  Sender: FDA-Public Use
  Company Number: NVSC2021GB032990

PATIENT
  Sex: Male

DRUGS (4)
  1. PROMETAX [Suspect]
     Active Substance: RIVASTIGMINE
     Dosage: 9.5 MG, Q24H (1 PATCH EVERY MORNING)
     Route: 065
  2. SERTRALINE [Concomitant]
     Active Substance: SERTRALINE HYDROCHLORIDE
     Dosage: 150 MG
     Route: 065
  3. PROMETAX [Suspect]
     Active Substance: RIVASTIGMINE
     Indication: PRODUCT USED FOR UNKNOWN INDICATION
     Dosage: 4.6 MG, Q24H
     Route: 065
  4. SERTRALINE [Concomitant]
     Active Substance: SERTRALINE HYDROCHLORIDE
     Indication: PRODUCT USED FOR UNKNOWN INDICATION
     Dosage: 150 MG
     Route: 065

REACTIONS (5)
  - Dementia with Lewy bodies [Unknown]
  - Condition aggravated [Unknown]
  - Drug ineffective [Unknown]
  - Parkinson^s disease [Unknown]
  - Drug intolerance [Unknown]
